FAERS Safety Report 10852771 (Version 1)
Quarter: 2015Q1

REPORT INFORMATION
  Report Type: Spontaneous
  Country: US (occurrence: US)
  Receive Date: 20150222
  Receipt Date: 20150222
  Transmission Date: 20150721
  Serious: No
  Sender: FDA-Public Use
  Company Number: US-ALLERGAN-1400157US

PATIENT
  Age: 51 Year
  Sex: Male

DRUGS (1)
  1. BOTOX [Suspect]
     Active Substance: ONABOTULINUMTOXINA
     Indication: MIGRAINE
     Dosage: UNK, SINGLE

REACTIONS (4)
  - Muscular weakness [Recovered/Resolved]
  - Nausea [Recovered/Resolved]
  - Therapeutic response decreased [Unknown]
  - Paralysis [Recovered/Resolved]
